FAERS Safety Report 23649258 (Version 1)
Quarter: 2024Q1

REPORT INFORMATION
  Report Type: Spontaneous
  Country: US (occurrence: US)
  Receive Date: 20240319
  Receipt Date: 20240319
  Transmission Date: 20240409
  Serious: Yes (Hospitalization, Other)
  Sender: FDA-Public Use
  Company Number: US-MYLANLABS-2024M1024442

PATIENT
  Age: 7 Decade
  Sex: Male

DRUGS (1)
  1. OCTREOTIDE [Suspect]
     Active Substance: OCTREOTIDE\OCTREOTIDE ACETATE
     Indication: Lymphatic fistula
     Dosage: 100 MILLIGRAM, Q8H
     Route: 058

REACTIONS (1)
  - Hypocalcaemia [Recovered/Resolved]
